FAERS Safety Report 7833293-9 (Version None)
Quarter: 2011Q4

REPORT INFORMATION
  Report Type: 
  Country: None (occurrence: None)
  Receive Date: 20111024
  Receipt Date: 20111013
  Transmission Date: 20120403
  Serious: Yes (Hospitalization, Other)
  Sender: FDA-Public Use
  Company Number: US-ELI_LILLY_AND_COMPANY-US201010000578

PATIENT
  Sex: Female

DRUGS (15)
  1. FORTEO [Suspect]
     Indication: OSTEOPOROSIS
     Dosage: 20 UG, DAILY (1/D)
     Dates: start: 20100909, end: 20101020
  2. IMODIUM [Concomitant]
  3. AMBIEN [Concomitant]
  4. FORTEO [Suspect]
     Dosage: 20 UG, DAILY (1/D)
     Dates: end: 20110501
  5. SIMVASTATIN [Concomitant]
  6. LOPERAMIDE HCL [Concomitant]
  7. COUMADIN [Concomitant]
  8. SYNTHROID [Concomitant]
  9. ACETAMINOPHEN [Concomitant]
  10. DIURETICS [Concomitant]
  11. ALBUTEROL [Concomitant]
  12. VERAPAMIL [Concomitant]
  13. SINGULAIR [Concomitant]
  14. ISOPTIN [Concomitant]
  15. CLONAZEPAM [Concomitant]

REACTIONS (11)
  - BACK PAIN [None]
  - HYPERTENSION [None]
  - FLUID RETENTION [None]
  - BREAST PAIN [None]
  - BREAST MASS [None]
  - GOUT [None]
  - JOINT SWELLING [None]
  - WEIGHT INCREASED [None]
  - DIARRHOEA [None]
  - MUSCLE SPASMS [None]
  - INTESTINAL OBSTRUCTION [None]
